FAERS Safety Report 7349685-0 (Version None)
Quarter: 2011Q1

REPORT INFORMATION
  Report Type: 
  Country: None (occurrence: None)
  Receive Date: 20110314
  Receipt Date: 20110307
  Transmission Date: 20110831
  Serious: Yes (Death)
  Sender: FDA-Public Use
  Company Number: JP-ASTRAZENECA-2011SE13330

PATIENT
  Age: 26670 Day
  Sex: Male

DRUGS (8)
  1. MEROPEN [Suspect]
     Route: 042
     Dates: start: 20110225, end: 20110225
  2. MEROPEN [Suspect]
     Indication: FEBRILE NEUTROPENIA
     Route: 042
     Dates: start: 20110218, end: 20110218
  3. GASTER [Concomitant]
     Route: 042
     Dates: start: 20110218, end: 20110225
  4. MEROPEN [Suspect]
     Route: 042
     Dates: start: 20110219, end: 20110224
  5. PANTOSIN [Concomitant]
     Dates: start: 20110111, end: 20110225
  6. VANCOMYCIN HYDROCHLORIDE [Concomitant]
     Route: 042
     Dates: start: 20110217, end: 20110225
  7. CYLOCIDE [Concomitant]
     Dates: start: 20110217, end: 20110224
  8. CIPROFLOXACIN HCL [Suspect]
     Indication: FEBRILE NEUTROPENIA

REACTIONS (2)
  - SEPSIS [None]
  - HEPATIC FUNCTION ABNORMAL [None]
